FAERS Safety Report 9212613 (Version 1)
Quarter: 2013Q2

REPORT INFORMATION
  Report Type: Spontaneous
  Country: US (occurrence: US)
  Receive Date: 20130405
  Receipt Date: 20130405
  Transmission Date: 20140414
  Serious: No
  Sender: FDA-Public Use
  Company Number: US-BIOGENIDEC-2013BI030580

PATIENT
  Age: 28 Year
  Sex: Female

DRUGS (1)
  1. AVONEX [Suspect]
     Indication: MULTIPLE SCLEROSIS
     Route: 030
     Dates: start: 20050611, end: 20070801

REACTIONS (4)
  - Somnolence [Unknown]
  - Multiple sclerosis relapse [Unknown]
  - Feeling hot [Unknown]
  - Influenza like illness [Unknown]
